FAERS Safety Report 5109235-6 (Version None)
Quarter: 2006Q3

REPORT INFORMATION
  Report Type: 
  Country: None (occurrence: None)
  Receive Date: 20060918
  Receipt Date: 20060907
  Transmission Date: 20061208
  Serious: Yes (Other)
  Sender: FDA-Public Use
  Company Number: S06-USA-02547-01

PATIENT
  Age: 82 Year
  Sex: Female
  Weight: 70.3075 kg

DRUGS (8)
  1. LEXAPRO [Suspect]
     Dosage: 10 MG QD PO
     Route: 048
     Dates: start: 20030101
  2. MONOPRIL [Concomitant]
  3. SYNTHROID [Concomitant]
  4. PREVACID [Concomitant]
  5. FOSAMAX [Concomitant]
  6. DYAZIDE (TRIAMTERENE/HYDROCHLOROTHIAZIDE) [Concomitant]
  7. COUMADIN [Concomitant]
  8. AMARYL [Concomitant]

REACTIONS (1)
  - HYPONATRAEMIA [None]
